FAERS Safety Report 7781858-5 (Version None)
Quarter: 2011Q3

REPORT INFORMATION
  Report Type: 
  Country: None (occurrence: None)
  Receive Date: 20110927
  Receipt Date: 20110922
  Transmission Date: 20111222
  Serious: Yes (Life-Threatening, Hospitalization)
  Sender: FDA-Public Use
  Company Number: IT-BRISTOL-MYERS SQUIBB COMPANY-15260169

PATIENT
  Age: 53 Year
  Sex: Male
  Weight: 63 kg

DRUGS (5)
  1. CLONIDINE [Suspect]
     Indication: HYPERTENSION
     Dates: start: 20100720, end: 20100821
  2. CILENGITIDE [Suspect]
     Indication: HEAD AND NECK CANCER
     Route: 042
     Dates: start: 20100721, end: 20100819
  3. CISPLATIN [Suspect]
     Indication: HEAD AND NECK CANCER
     Dosage: INF-2
     Route: 042
     Dates: start: 20100721, end: 20100816
  4. CETUXIMAB [Suspect]
     Indication: HEAD AND NECK CANCER
     Dosage: 5MG/ML
     Route: 042
     Dates: start: 20100721, end: 20100816
  5. FLUOROURACIL [Suspect]
     Indication: HEAD AND NECK CANCER
     Dosage: CONTINUOUS INF FROM DAY 1 TO DAY 4 OF CYCLE;
     Route: 042
     Dates: start: 20100721, end: 20100816

REACTIONS (8)
  - HYPONATRAEMIA [None]
  - GAMMA-GLUTAMYLTRANSFERASE INCREASED [None]
  - TRANSAMINASES INCREASED [None]
  - HYPOTENSION [None]
  - HYPOCALCAEMIA [None]
  - HAEMOGLOBIN DECREASED [None]
  - HYPOKALAEMIA [None]
  - HAEMATOCRIT DECREASED [None]
